FAERS Safety Report 7284177-9 (Version None)
Quarter: 2011Q1

REPORT INFORMATION
  Report Type: 
  Country: None (occurrence: None)
  Receive Date: 20110127
  Receipt Date: 20110118
  Transmission Date: 20110831
  Serious: Yes (Other)
  Sender: FDA-Public Use
  Company Number: 022259

PATIENT
  Sex: Male
  Weight: 90.7 kg

DRUGS (15)
  1. TRAZODONE [Concomitant]
  2. AMILORID/HCTZ [Concomitant]
  3. LEVOTHYROXINE SODIUM [Concomitant]
  4. LACOSAMIDE [Suspect]
     Indication: CONVULSION
     Dosage: (150 MG BID ORAL), (200 MG BID ORAL)
     Route: 048
     Dates: start: 20090101
  5. PRAVASTATIN [Concomitant]
  6. HYDROCHLOROTHIAZIDE [Concomitant]
  7. HYDROMORPHONE [Concomitant]
  8. KLONOPIN [Concomitant]
  9. KEPPRA [Suspect]
     Indication: CONVULSION
     Dosage: (25OO MG, 250 MG TABS (5 TABS AM/ A TABS PM) ORAL)
     Route: 048
     Dates: start: 20050101
  10. CEPHALEXIN [Concomitant]
  11. ADVAIR [Concomitant]
  12. ALLOPURINOL [Concomitant]
  13. XANAX [Concomitant]
  14. ALUTEROL /00139501/ [Concomitant]
  15. RESTORIL /00393701/ [Concomitant]

REACTIONS (5)
  - FACIAL BONES FRACTURE [None]
  - INAPPROPRIATE SCHEDULE OF DRUG ADMINISTRATION [None]
  - CHRONIC OBSTRUCTIVE PULMONARY DISEASE [None]
  - GRAND MAL CONVULSION [None]
  - LACERATION [None]
